FAERS Safety Report 4551346-8 (Version None)
Quarter: 2005Q1

REPORT INFORMATION
  Report Type: 
  Country: None (occurrence: None)
  Receive Date: 20050110
  Receipt Date: 20050105
  Transmission Date: 20050727
  Serious: Yes (Death)
  Sender: FDA-Public Use
  Company Number: 04-12-1761

PATIENT
  Age: 52 Year
  Sex: Male

DRUGS (1)
  1. CLOZAPINE [Suspect]
     Dosage: 200-300MG QD ORAL
     Route: 048
     Dates: start: 20010701, end: 20041101

REACTIONS (1)
  - HEPATIC NEOPLASM [None]
